FAERS Safety Report 24195359 (Version 2)
Quarter: 2024Q3

REPORT INFORMATION
  Report Type: Spontaneous
  Country: US (occurrence: US)
  Receive Date: 20240809
  Receipt Date: 20240911
  Transmission Date: 20241017
  Serious: Yes (Other)
  Sender: Alora Pharma
  Company Number: US-ACELLA PHARMACEUTICALS, LLC-2024ALO00353

PATIENT
  Sex: Female
  Weight: 56.689 kg

DRUGS (3)
  1. NP THYROID [Suspect]
     Active Substance: LEVOTHYROXINE\LIOTHYRONINE
     Indication: Hypothyroidism
     Dosage: 90 MG, 1X/DAY
     Route: 048
     Dates: start: 2019
  2. NP THYROID [Suspect]
     Active Substance: LEVOTHYROXINE\LIOTHYRONINE
     Dosage: 90 MG, 1X/DAY
     Route: 048
     Dates: start: 202405, end: 2024
  3. NP THYROID [Suspect]
     Active Substance: LEVOTHYROXINE\LIOTHYRONINE
     Dosage: UNK

REACTIONS (18)
  - Macular degeneration [Not Recovered/Not Resolved]
  - Tachycardia [Not Recovered/Not Resolved]
  - Memory impairment [Not Recovered/Not Resolved]
  - Eye disorder [Not Recovered/Not Resolved]
  - Insomnia [Not Recovered/Not Resolved]
  - Dyspepsia [Not Recovered/Not Resolved]
  - Gastric mucosal lesion [Not Recovered/Not Resolved]
  - Thyroid mass [Not Recovered/Not Resolved]
  - Nausea [Not Recovered/Not Resolved]
  - Abdominal pain upper [Not Recovered/Not Resolved]
  - Cardiac disorder [Not Recovered/Not Resolved]
  - Product taste abnormal [Recovered/Resolved]
  - Product odour abnormal [Recovered/Resolved]
  - Product colour issue [Recovered/Resolved]
  - Drug ineffective [Recovered/Resolved]
  - Brain fog [Not Recovered/Not Resolved]
  - Abdominal discomfort [Unknown]
  - Product formulation issue [Recovered/Resolved]

NARRATIVE: CASE EVENT DATE: 20240101
